FAERS Safety Report 13206262 (Version 2)
Quarter: 2017Q2

REPORT INFORMATION
  Report Type: Spontaneous
  Country: US (occurrence: US)
  Receive Date: 20170209
  Receipt Date: 20170503
  Transmission Date: 20170830
  Serious: No
  Sender: FDA-Public Use
  Company Number: US-SA-2017SA013165

PATIENT
  Age: 71 Year
  Sex: Female

DRUGS (9)
  1. ALIROCUMAB PREFILLED PEN [Concomitant]
     Active Substance: ALIROCUMAB
     Dates: start: 201605
  2. IBUPROFEN. [Concomitant]
     Active Substance: IBUPROFEN
  3. CELEBREX [Concomitant]
     Active Substance: CELECOXIB
  4. LISINOPRIL. [Concomitant]
     Active Substance: LISINOPRIL
  5. PENICILLIN [Concomitant]
     Active Substance: PENICILLIN
  6. LOSARTAN. [Concomitant]
     Active Substance: LOSARTAN
  7. PRALUENT [Suspect]
     Active Substance: ALIROCUMAB
     Indication: BLOOD CHOLESTEROL
     Route: 058
     Dates: start: 201605
  8. VALSARTAN. [Concomitant]
     Active Substance: VALSARTAN
  9. MORPHINE [Concomitant]
     Active Substance: MORPHINE

REACTIONS (1)
  - Weight increased [Unknown]
